FAERS Safety Report 13530045 (Version 1)
Quarter: 2017Q2

REPORT INFORMATION
  Report Type: Spontaneous
  Country: US (occurrence: US)
  Receive Date: 20170509
  Receipt Date: 20170509
  Transmission Date: 20170830
  Serious: No
  Sender: FDA-Public Use
  Company Number: US-UCBSA-2016009859

PATIENT
  Age: 47 Year
  Sex: Female
  Weight: 80 kg

DRUGS (9)
  1. LYRICA [Concomitant]
     Active Substance: PREGABALIN
     Indication: FIBROMYALGIA
     Dosage: 540 MG, ONCE DAILY (QD)
  2. LITHIUM. [Concomitant]
     Active Substance: LITHIUM
     Indication: BIPOLAR DISORDER
     Dosage: 600MG Q AM AND 900 MG AT NIGHT
  3. OMEPRAZOLE. [Concomitant]
     Active Substance: OMEPRAZOLE
     Indication: GASTROOESOPHAGEAL REFLUX DISEASE
     Dosage: 1 DF, UNK
  4. VITAMIN D [Concomitant]
     Active Substance: CHOLECALCIFEROL
     Indication: PRODUCT USED FOR UNKNOWN INDICATION
  5. NEUPRO [Suspect]
     Active Substance: ROTIGOTINE
     Dosage: 2 MG
     Route: 062
     Dates: start: 20160216, end: 201602
  6. LAMICTAL [Concomitant]
     Active Substance: LAMOTRIGINE
     Indication: PRODUCT USED FOR UNKNOWN INDICATION
     Dosage: DF
  7. CABERGOLINE. [Concomitant]
     Active Substance: CABERGOLINE
     Indication: BLOOD PROLACTIN DECREASED
  8. NEUPRO [Suspect]
     Active Substance: ROTIGOTINE
     Indication: RESTLESS LEGS SYNDROME
     Dosage: 1 MG, ONCE DAILY (QD)
     Route: 062
     Dates: start: 20160215, end: 20160215
  9. NEUPRO [Suspect]
     Active Substance: ROTIGOTINE
     Dosage: 1 MG
     Route: 062
     Dates: start: 20160219

REACTIONS (10)
  - Pain in extremity [Not Recovered/Not Resolved]
  - Paraesthesia [Not Recovered/Not Resolved]
  - Decreased appetite [Recovering/Resolving]
  - Insomnia [Recovered/Resolved]
  - Amnesia [Recovered/Resolved]
  - Inappropriate schedule of drug administration [Unknown]
  - Hypoaesthesia [Not Recovered/Not Resolved]
  - Blood pressure increased [Recovered/Resolved]
  - Heart rate increased [Recovered/Resolved]
  - Pain [Recovered/Resolved]

NARRATIVE: CASE EVENT DATE: 2016
